FAERS Safety Report 17565242 (Version 1)
Quarter: 2020Q1

REPORT INFORMATION
  Report Type: Spontaneous
  Country: US (occurrence: US)
  Receive Date: 20200320
  Receipt Date: 20200320
  Transmission Date: 20200409
  Serious: No
  Sender: FDA-Public Use
  Company Number: US-MYLANLABS-2020M1028232

PATIENT
  Age: 6 Year
  Sex: Female
  Weight: 22 kg

DRUGS (2)
  1. CLONIDINE TRANSDERMAL SYSTEM [Suspect]
     Active Substance: CLONIDINE
     Dosage: WEEKLY (CUT A PATCH IN HALF)
     Route: 062
     Dates: start: 20200308
  2. CLONIDINE TRANSDERMAL SYSTEM [Suspect]
     Active Substance: CLONIDINE
     Indication: ATTENTION DEFICIT/HYPERACTIVITY DISORDER
     Dosage: WEEKLY
     Route: 062
     Dates: start: 20200306

REACTIONS (6)
  - Nasopharyngitis [Recovered/Resolved]
  - Somnolence [Recovered/Resolved]
  - Wrong technique in product usage process [Recovered/Resolved]
  - Decreased appetite [Recovered/Resolved]
  - Therapeutic product effect increased [Recovering/Resolving]
  - Off label use [Not Recovered/Not Resolved]

NARRATIVE: CASE EVENT DATE: 20200306
